FAERS Safety Report 5575267-7 (Version None)
Quarter: 2007Q4

REPORT INFORMATION
  Report Type: 
  Country: None (occurrence: None)
  Receive Date: 20071221
  Receipt Date: 20071213
  Transmission Date: 20080405
  Serious: Yes (Hospitalization)
  Sender: FDA-Public Use
  Company Number: 220019M07USA

PATIENT
  Age: 13 Year
  Sex: Female
  Weight: 48.8 kg

DRUGS (2)
  1. SAIZEN [ (SOMATROIPIN (RDNA ORIGIN) FOR INJECTION) ](SOMATROPIN) [Suspect]
     Indication: GROWTH HORMONE DEFICIENCY
     Dosage: 2.56 MG, SUBCUTANEOUS, 2.56 MG, SUBCUTANEOUS
     Route: 058
     Dates: start: 20071112, end: 20071117
  2. SAIZEN [ (SOMATROIPIN (RDNA ORIGIN) FOR INJECTION) ](SOMATROPIN) [Suspect]
     Indication: GROWTH HORMONE DEFICIENCY
     Dosage: 2.56 MG, SUBCUTANEOUS, 2.56 MG, SUBCUTANEOUS
     Route: 058
     Dates: start: 20071123, end: 20071210

REACTIONS (3)
  - DEVICE BREAKAGE [None]
  - DRUG DOSE OMISSION [None]
  - PANCREATITIS ACUTE [None]
